FAERS Safety Report 15522822 (Version 1)
Quarter: 2018Q4

REPORT INFORMATION
  Report Type: Spontaneous
  Country: US (occurrence: US)
  Receive Date: 20181013
  Receipt Date: 20181013
  Transmission Date: 20190205
  Serious: Yes (Other)
  Sender: FDA-Public Use
  Company Number: None

PATIENT
  Age: 28 Year
  Sex: Female
  Weight: 58.5 kg

DRUGS (6)
  1. ECHINACEA [Concomitant]
     Active Substance: ECHINACEA, UNSPECIFIED
  2. VITAMIN C [Concomitant]
     Active Substance: ASCORBIC ACID
  3. ALYACEN 1/35 [Suspect]
     Active Substance: ETHINYL ESTRADIOL\NORETHINDRONE
     Indication: COAGULOPATHY
     Dosage: ?          QUANTITY:28 DF DOSAGE FORM;?
     Route: 048
     Dates: start: 20160416, end: 20180330
  4. ALYACEN 1/35 [Suspect]
     Active Substance: ETHINYL ESTRADIOL\NORETHINDRONE
     Indication: OVULATION DISORDER
     Dosage: ?          QUANTITY:28 DF DOSAGE FORM;?
     Route: 048
     Dates: start: 20160416, end: 20180330
  5. CRANBERRY. [Concomitant]
     Active Substance: CRANBERRY
  6. ALYACEN 1/35 [Suspect]
     Active Substance: ETHINYL ESTRADIOL\NORETHINDRONE
     Indication: MENSTRUATION IRREGULAR
     Dosage: ?          QUANTITY:28 DF DOSAGE FORM;?
     Route: 048
     Dates: start: 20160416, end: 20180330

REACTIONS (12)
  - Fear of eating [None]
  - Eating disorder [None]
  - Pruritus [None]
  - Anxiety [None]
  - Fear [None]
  - Nausea [None]
  - Heart rate increased [None]
  - Hyperhidrosis [None]
  - Insomnia [None]
  - Fear of disease [None]
  - Lip swelling [None]
  - Palpitations [None]

NARRATIVE: CASE EVENT DATE: 20161227
